FAERS Safety Report 26143554 (Version 1)
Quarter: 2025Q4

REPORT INFORMATION
  Report Type: Spontaneous
  Country: US (occurrence: US)
  Receive Date: 20251211
  Receipt Date: 20251211
  Transmission Date: 20260117
  Serious: Yes (Death, Disabling, Other)
  Sender: CHATTEM
  Company Number: US-OPELLA-2025OHG034817

PATIENT
  Sex: Female

DRUGS (1)
  1. GOLD BOND ORIGINAL STRENGTH [Suspect]
     Active Substance: MENTHOL
     Indication: Product used for unknown indication
     Route: 065
     Dates: end: 2022

REACTIONS (3)
  - Mesothelioma [Fatal]
  - Lung neoplasm malignant [Fatal]
  - Exposure to chemical pollution [Fatal]

NARRATIVE: CASE EVENT DATE: 20220701
